FAERS Safety Report 5714483-8 (Version None)
Quarter: 2008Q2

REPORT INFORMATION
  Report Type: 
  Country: None (occurrence: None)
  Receive Date: 20080423
  Receipt Date: 20080414
  Transmission Date: 20081010
  Serious: Yes (Other)
  Sender: FDA-Public Use
  Company Number: PHHY2008BR05774

PATIENT
  Age: 58 Year
  Sex: Female
  Weight: 68 kg

DRUGS (2)
  1. EXFORGE [Suspect]
     Indication: HYPERTENSION
     Dosage: 80/5MG, QD
     Route: 048
     Dates: start: 20050101
  2. LORAX [Concomitant]
     Dosage: 0.5 DF, QD
     Route: 048
     Dates: start: 20030101

REACTIONS (7)
  - AGEUSIA [None]
  - ANOSMIA [None]
  - ARRHYTHMIA [None]
  - ARTHRALGIA [None]
  - HYPERTENSION [None]
  - PAIN IN EXTREMITY [None]
  - PALPITATIONS [None]
